FAERS Safety Report 8157865-X (Version None)
Quarter: 2012Q1

REPORT INFORMATION
  Report Type: 
  Country: None (occurrence: None)
  Receive Date: 20120222
  Receipt Date: 20120222
  Transmission Date: 20120608
  Serious: Yes (Hospitalization)
  Sender: FDA-Public Use
  Company Number: US-VERTEX PHARMACEUTICALS INC.-AE-2011-004252

PATIENT
  Sex: Male
  Weight: 90.8 kg

DRUGS (3)
  1. INCIVEK [Suspect]
     Indication: HEPATITIS C
     Route: 048
     Dates: start: 20111003
  2. PEGASYS [Concomitant]
     Indication: HEPATITIS C
     Route: 058
     Dates: start: 20111003
  3. RIBAVIRIN [Concomitant]
     Indication: HEPATITIS C
     Route: 048
     Dates: start: 20111003

REACTIONS (13)
  - ANORECTAL DISCOMFORT [None]
  - HAEMORRHOIDS [None]
  - FALL [None]
  - MUSCULAR WEAKNESS [None]
  - BLOOD GLUCOSE DECREASED [None]
  - ABDOMINAL PAIN [None]
  - WEIGHT DECREASED [None]
  - URINARY RETENTION [None]
  - ANAEMIA [None]
  - RASH [None]
  - URINARY TRACT INFECTION [None]
  - DIARRHOEA [None]
  - PRURITUS [None]
